FAERS Safety Report 18924259 (Version 1)
Quarter: 2021Q1

REPORT INFORMATION
  Report Type: Spontaneous
  Country: CN (occurrence: CN)
  Receive Date: 20210222
  Receipt Date: 20210222
  Transmission Date: 20210420
  Serious: Yes (Hospitalization, Other)
  Sender: FDA-Public Use
  Company Number: CN-PFIZER INC-2021184517

PATIENT
  Age: 49 Year
  Sex: Male
  Weight: 50 kg

DRUGS (2)
  1. TAZOCIN [Suspect]
     Active Substance: PIPERACILLIN SODIUM\TAZOBACTAM SODIUM
     Indication: ANTI-INFECTIVE THERAPY
     Dosage: 4.5 G, 3X/DAY
     Route: 041
     Dates: start: 20210120, end: 20210205
  2. SODIUM CHLORIDE. [Concomitant]
     Active Substance: SODIUM CHLORIDE
     Indication: VEHICLE SOLUTION USE
     Dosage: 100 ML, 3X/DAY
     Route: 041
     Dates: start: 20210120, end: 20210205

REACTIONS (5)
  - Myelosuppression [Recovering/Resolving]
  - Pyrexia [Recovering/Resolving]
  - Neutrophil count decreased [Recovering/Resolving]
  - Oropharyngeal pain [Recovering/Resolving]
  - White blood cell count decreased [Recovering/Resolving]

NARRATIVE: CASE EVENT DATE: 20210203
